FAERS Safety Report 15407726 (Version 1)
Quarter: 2018Q3

REPORT INFORMATION
  Report Type: Spontaneous
  Country: US (occurrence: US)
  Receive Date: 20180920
  Receipt Date: 20180920
  Transmission Date: 20181010
  Serious: No
  Sender: FDA-Public Use
  Company Number: US-BAUSCH-BL-2018-004783

PATIENT
  Age: 73 Year
  Sex: Male
  Weight: 88.53 kg

DRUGS (4)
  1. ATORVASTATIN [Concomitant]
     Active Substance: ATORVASTATIN
     Indication: PRODUCT USED FOR UNKNOWN INDICATION
  2. EFUDEX [Suspect]
     Active Substance: FLUOROURACIL
     Dosage: ONCE DAILY ON HEAD AND FOREHEAD, AND TWICE DAILY ON FACE AND NECK
     Route: 061
     Dates: start: 20180205, end: 20180211
  3. LISINOPRIL. [Concomitant]
     Active Substance: LISINOPRIL
     Indication: PRODUCT USED FOR UNKNOWN INDICATION
  4. EFUDEX [Suspect]
     Active Substance: FLUOROURACIL
     Indication: SKIN CANCER
     Dosage: ON THE HEAD AND FOREHEAD
     Route: 061
     Dates: start: 20180122

REACTIONS (1)
  - Drug eruption [Recovering/Resolving]

NARRATIVE: CASE EVENT DATE: 20180210
